FAERS Safety Report 7161548-2 (Version None)
Quarter: 2010Q4

REPORT INFORMATION
  Report Type: 
  Country: None (occurrence: None)
  Receive Date: 20101215
  Receipt Date: 20101210
  Transmission Date: 20110411
  Serious: Yes (Death)
  Sender: FDA-Public Use
  Company Number: JP-JNJFOC-20101007811

PATIENT
  Sex: Female
  Weight: 46 kg

DRUGS (9)
  1. DOXIL [Suspect]
     Indication: OVARIAN CANCER
     Route: 042
  2. REN-SHEN-YANG-RONG-TANG [Concomitant]
     Indication: NUTRITIONAL SUPPORT
     Route: 048
  3. GASCON [Concomitant]
     Indication: CONSTIPATION
     Route: 048
  4. UNKNOWN MEDICATION [Concomitant]
     Indication: CONSTIPATION
     Route: 048
  5. LAC-B [Concomitant]
     Indication: CONSTIPATION
     Route: 048
  6. NAIXAN [Concomitant]
     Indication: PROPHYLAXIS
     Route: 048
  7. OXYCONTIN [Concomitant]
     Indication: PROPHYLAXIS
     Route: 048
  8. DECADRON [Concomitant]
     Indication: PROPHYLAXIS
     Route: 048
  9. PYDOXAL [Concomitant]
     Route: 048

REACTIONS (5)
  - ANAEMIA [None]
  - DISSEMINATED INTRAVASCULAR COAGULATION [None]
  - INTERSTITIAL LUNG DISEASE [None]
  - MULTI-ORGAN FAILURE [None]
  - OVARIAN CANCER [None]
